FAERS Safety Report 4498296-3 (Version None)
Quarter: 2004Q4

REPORT INFORMATION
  Report Type: 
  Country: None (occurrence: None)
  Receive Date: 20041109
  Receipt Date: 20041109
  Transmission Date: 20050328
  Serious: Yes (Death, Life-Threatening, Hospitalization)
  Sender: FDA-Public Use
  Company Number: None

PATIENT
  Age: 78 Year
  Sex: Male
  Weight: 99.7 kg

DRUGS (1)
  1. UNASYN [Suspect]
     Dosage: 3 G 96 HRS IV
     Route: 042
     Dates: start: 20040906, end: 20040908

REACTIONS (1)
  - RASH [None]
